FAERS Safety Report 6042050-8 (Version None)
Quarter: 2009Q1

REPORT INFORMATION
  Report Type: 
  Country: None (occurrence: None)
  Receive Date: 20090116
  Receipt Date: 20090105
  Transmission Date: 20090719
  Serious: Yes (Other)
  Sender: FDA-Public Use
  Company Number: US-JNJFOC-20090102915

PATIENT
  Sex: Male
  Weight: 68.04 kg

DRUGS (3)
  1. MOTRIN [Suspect]
  2. MOTRIN [Suspect]
     Indication: MUSCULOSKELETAL PAIN
  3. CELEBREX [Suspect]
     Indication: MUSCULOSKELETAL PAIN

REACTIONS (2)
  - ABDOMINAL PAIN UPPER [None]
  - ANGIOEDEMA [None]
